FAERS Safety Report 9736959 (Version 1)
Quarter: 2013Q4

REPORT INFORMATION
  Report Type: Spontaneous
  Country: NL (occurrence: NL)
  Receive Date: 20131206
  Receipt Date: 20131206
  Transmission Date: 20140711
  Serious: Yes (Life-Threatening, Other)
  Sender: FDA-Public Use
  Company Number: NL-009507513-1312NLD002144

PATIENT
  Age: 27 Year
  Sex: Female
  Weight: 55 kg

DRUGS (1)
  1. NUVARING [Suspect]
     Indication: CONTRACEPTION
     Dosage: 1 DF, 1 TIMES PER 1 MONTH
     Route: 067
     Dates: start: 2007, end: 2009

REACTIONS (5)
  - Pyelonephritis [Recovered/Resolved]
  - Panic disorder [Not Recovered/Not Resolved]
  - Abortion spontaneous [Recovered/Resolved with Sequelae]
  - Pericarditis [Recovered/Resolved with Sequelae]
  - Cystitis [Recovered/Resolved]
